FAERS Safety Report 5947672-8 (Version None)
Quarter: 2008Q4

REPORT INFORMATION
  Report Type: 
  Country: None (occurrence: None)
  Receive Date: 20081111
  Receipt Date: 20081104
  Transmission Date: 20090506
  Serious: Yes (Hospitalization)
  Sender: FDA-Public Use
  Company Number: GB-RANBAXY-2008RR-18759

PATIENT
  Age: 34 Year
  Sex: Male

DRUGS (11)
  1. CLARITHROMYCIN [Suspect]
     Indication: PSEUDOMONAS INFECTION
  2. CLARITHROMYCIN [Suspect]
     Indication: MYCOBACTERIUM ABSCESSUS INFECTION
  3. COLOMYCIN [Concomitant]
     Indication: DRUG USE FOR UNKNOWN INDICATION
     Route: 042
  4. INTERFERON GAMMA [Concomitant]
     Indication: PSEUDOMONAS INFECTION
     Route: 058
  5. INTERFERON GAMMA [Concomitant]
     Indication: MYCOBACTERIUM ABSCESSUS INFECTION
  6. MEROPENEM [Concomitant]
     Indication: DRUG USE FOR UNKNOWN INDICATION
     Dosage: UNK
     Route: 042
  7. MINOCYCLINE HCL [Concomitant]
     Indication: PSEUDOMONAS INFECTION
  8. MINOCYCLINE HCL [Concomitant]
     Indication: MYCOBACTERIUM ABSCESSUS INFECTION
  9. OMEPRAZOLE [Concomitant]
     Indication: GASTROOESOPHAGEAL REFLUX DISEASE
  10. TOBRAMYCIN [Concomitant]
     Indication: PSEUDOMONAS INFECTION
     Route: 055
  11. TOBRAMYCIN [Concomitant]
     Indication: MYCOBACTERIUM ABSCESSUS INFECTION

REACTIONS (9)
  - ABDOMINAL PAIN [None]
  - COLITIS [None]
  - DEHYDRATION [None]
  - DIARRHOEA [None]
  - HYPOTENSION [None]
  - NAUSEA [None]
  - PSEUDOMEMBRANOUS COLITIS [None]
  - PYREXIA [None]
  - TACHYCARDIA [None]
